FAERS Safety Report 11151216 (Version 1)
Quarter: 2015Q2

REPORT INFORMATION
  Report Type: Report from Study
  Country: AU (occurrence: AU)
  Receive Date: 20150601
  Receipt Date: 20150601
  Transmission Date: 20150821
  Serious: Yes (Death, Hospitalization)
  Sender: FDA-Public Use
  Company Number: AU-SA-2015SA072114

PATIENT
  Age: 50 Year
  Sex: Female

DRUGS (26)
  1. FLUDARABINE PHOSPHATE. [Suspect]
     Active Substance: FLUDARABINE PHOSPHATE
     Indication: BONE MARROW CONDITIONING REGIMEN
     Dosage: DAY 1-5
     Route: 065
  2. FLUDARABINE PHOSPHATE. [Suspect]
     Active Substance: FLUDARABINE PHOSPHATE
     Indication: CHEMOTHERAPY
     Dosage: RECEIVED ON DAY 6 TO -2
     Route: 048
  3. CYTARABINE. [Concomitant]
     Active Substance: CYTARABINE
     Indication: CHEMOTHERAPY
     Dosage: 3000 MG/M2 B.D. D1,3, 5, 7?BIG ICE
  4. CYTARABINE. [Concomitant]
     Active Substance: CYTARABINE
     Indication: CHEMOTHERAPY
     Dosage: D1-D7?INDUCTION
  5. CYTARABINE. [Concomitant]
     Active Substance: CYTARABINE
     Indication: CHEMOTHERAPY
     Dosage: 3000 MG/M2 B.D. D1,3, 5, 7?BIG ICE
  6. IDARUBICIN [Concomitant]
     Active Substance: IDARUBICIN
     Indication: CHEMOTHERAPY
     Dosage: FLAG-IDA?D1-D3
  7. IDARUBICIN [Concomitant]
     Active Substance: IDARUBICIN
     Indication: CHEMOTHERAPY
     Dosage: FLAG-IDA?D1-D3
  8. VALACICLOVIR [Concomitant]
     Active Substance: VALACYCLOVIR HYDROCHLORIDE
     Indication: ANTIVIRAL PROPHYLAXIS
  9. CYTARABINE. [Concomitant]
     Active Substance: CYTARABINE
     Indication: CHEMOTHERAPY
     Dosage: 3000 MG/M2 B.D. D1,3, 5, 7?BIG ICE
  10. CYTARABINE. [Concomitant]
     Active Substance: CYTARABINE
     Indication: CHEMOTHERAPY
     Dosage: D1-D5?FLAG-IDA
  11. DAUNORUBICIN [Concomitant]
     Active Substance: DAUNORUBICIN
     Indication: CHEMOTHERAPY
     Dosage: DAYS 1 TO 3
  12. IDARUBICIN [Concomitant]
     Active Substance: IDARUBICIN
     Indication: CHEMOTHERAPY
     Dosage: BIG-ICE
  13. ETOPOSIDE. [Concomitant]
     Active Substance: ETOPOSIDE
     Indication: CHEMOTHERAPY
     Dosage: D1-D7
  14. FLUDARABINE PHOSPHATE. [Suspect]
     Active Substance: FLUDARABINE PHOSPHATE
     Indication: CHEMOTHERAPY
     Dosage: DAY 1-5
     Route: 065
  15. METHOTREXATE [Concomitant]
     Active Substance: METHOTREXATE
     Indication: PROPHYLAXIS AGAINST GRAFT VERSUS HOST DISEASE
     Dosage: DAYS 1, 3, 6, 11
     Route: 042
  16. CYTARABINE. [Concomitant]
     Active Substance: CYTARABINE
     Indication: CHEMOTHERAPY
     Dosage: D1-D5?FLAG-IDA
  17. IDARUBICIN [Concomitant]
     Active Substance: IDARUBICIN
     Indication: CHEMOTHERAPY
     Dosage: BIG-ICE
  18. FLUDARABINE PHOSPHATE. [Suspect]
     Active Substance: FLUDARABINE PHOSPHATE
     Indication: BONE MARROW CONDITIONING REGIMEN
     Dosage: RECEIVED ON DAY 6 TO -2
     Route: 048
  19. MELPHALAN [Suspect]
     Active Substance: MELPHALAN
     Indication: BONE MARROW CONDITIONING REGIMEN
     Dosage: RECEIVED ON DAY -2
     Route: 042
  20. CYCLOSPORINE. [Concomitant]
     Active Substance: CYCLOSPORINE
     Indication: PROPHYLAXIS AGAINST GRAFT VERSUS HOST DISEASE
     Dosage: TARGETED TO 100-200 MG/L WITH THERAPEUTIC DRUG MONITORING
     Route: 042
  21. PREDNISOLONE. [Concomitant]
     Active Substance: PREDNISOLONE
     Indication: PROPHYLAXIS AGAINST GRAFT VERSUS HOST DISEASE
  22. CYTARABINE. [Concomitant]
     Active Substance: CYTARABINE
     Indication: CHEMOTHERAPY
     Dosage: D1-D5?FLAG-IDA
  23. FILGRASTIM [Concomitant]
     Active Substance: FILGRASTIM
     Indication: CHEMOTHERAPY
     Dosage: D0 UNTIL NEUTROPHIL RECOVERY
  24. CLOFARABINE [Concomitant]
     Active Substance: CLOFARABINE
  25. CYTARABINE. [Concomitant]
     Active Substance: CYTARABINE
     Indication: CHEMOTHERAPY
     Dosage: D1-D7?INDUCTION
  26. CYTARABINE. [Concomitant]
     Active Substance: CYTARABINE
     Indication: CHEMOTHERAPY
     Dosage: D1-D7?INDUCTION

REACTIONS (4)
  - Pseudomonal sepsis [Fatal]
  - Product use issue [Fatal]
  - Pseudomonas infection [Fatal]
  - Multi-organ failure [Fatal]
